FAERS Safety Report 7743337 (Version 3)
Quarter: 2014Q4

REPORT INFORMATION
  Report Type: Report from Study
  Country: JP (occurrence: JP)
  Receive Date: 20101229
  Receipt Date: 20141121
  Transmission Date: 20150529
  Serious: Yes (Death, Hospitalization, Disabling, Other)
  Sender: FDA-Public Use
  Company Number: PHHY2010JP85998

PATIENT
  Age: 63 Year
  Sex: Male

DRUGS (6)
  1. SUNITINIB MALATE [Concomitant]
     Active Substance: SUNITINIB MALATE
     Indication: METASTATIC RENAL CELL CARCINOMA
     Dosage: 25 MG, UNK
     Route: 048
     Dates: start: 20091209, end: 20100917
  2. NEXAVAR [Concomitant]
     Active Substance: SORAFENIB
     Indication: METASTATIC RENAL CELL CARCINOMA
     Dosage: 800 MG, UNK
     Route: 048
     Dates: start: 20081210, end: 20091202
  3. OPSO [Concomitant]
     Active Substance: MORPHINE HYDROCHLORIDE
     Indication: METASTATIC RENAL CELL CARCINOMA
     Dosage: 10 MG, UNK
     Route: 048
     Dates: start: 20101022, end: 20101124
  4. AFINITOR [Suspect]
     Active Substance: EVEROLIMUS
     Indication: METASTATIC RENAL CELL CARCINOMA
     Dosage: 10 MG, QD
     Route: 048
     Dates: start: 20101022, end: 20101207
  5. DEPAKENE [Concomitant]
     Active Substance: VALPROIC ACID
     Indication: METASTATIC RENAL CELL CARCINOMA
     Dosage: 400 MG, UNK
     Route: 048
     Dates: start: 20101030
  6. RINDERON V [Concomitant]
     Active Substance: BETAMETHASONE VALERATE
     Indication: METASTATIC RENAL CELL CARCINOMA
     Dosage: 2 MG, UNK
     Route: 048
     Dates: start: 20101030

REACTIONS (7)
  - Blood lactate dehydrogenase increased [Unknown]
  - Platelet count decreased [Fatal]
  - Red blood cell count decreased [Unknown]
  - Cerebral haemorrhage [Not Recovered/Not Resolved]
  - Interstitial lung disease [Unknown]
  - Blood glucose increased [Unknown]
  - Malignant neoplasm progression [Fatal]

NARRATIVE: CASE EVENT DATE: 20101101
